FAERS Safety Report 15715374 (Version 1)
Quarter: 2018Q4

REPORT INFORMATION
  Report Type: Spontaneous
  Country: US (occurrence: US)
  Receive Date: 20181212
  Receipt Date: 20181212
  Transmission Date: 20190205
  Serious: Yes (Hospitalization)
  Sender: FDA-Public Use
  Company Number: US-STRONGBRIDGE BIOPHARMA-2018-STR-000409

PATIENT
  Age: 32 Year
  Sex: Female

DRUGS (1)
  1. KEVEYIS [Suspect]
     Active Substance: DICHLORPHENAMIDE
     Indication: PRODUCT USED FOR UNKNOWN INDICATION
     Dosage: 50 MG, QD
     Route: 048

REACTIONS (7)
  - Disease recurrence [Unknown]
  - Swollen tongue [Unknown]
  - Trismus [Unknown]
  - Facial pain [Unknown]
  - Tongue pigmentation [Unknown]
  - Underdose [Unknown]
  - Myotonia [Unknown]

NARRATIVE: CASE EVENT DATE: 201812
